FAERS Safety Report 6412596-9 (Version None)
Quarter: 2009Q4

REPORT INFORMATION
  Report Type: 
  Country: None (occurrence: None)
  Receive Date: 20091023
  Receipt Date: 20091012
  Transmission Date: 20100525
  Serious: Yes (Hospitalization)
  Sender: FDA-Public Use
  Company Number: PHEH2009US13679

PATIENT
  Sex: Female

DRUGS (1)
  1. EXJADE [Suspect]
     Dosage: 1625 MG DAILY
     Route: 048
     Dates: start: 20070110, end: 20090831

REACTIONS (1)
  - PERICARDIAL EFFUSION [None]
